FAERS Safety Report 7648321-3 (Version None)
Quarter: 2011Q3

REPORT INFORMATION
  Report Type: 
  Country: None (occurrence: None)
  Receive Date: 20110801
  Receipt Date: 20110721
  Transmission Date: 20111222
  Serious: Yes (Other)
  Sender: FDA-Public Use
  Company Number: ZA-ASTRAZENECA-2011SE44324

PATIENT
  Sex: Female

DRUGS (5)
  1. SERETIDE [Concomitant]
  2. CRESTOR [Suspect]
     Indication: HYPERCHOLESTEROLAEMIA
     Route: 048
  3. CALCICARD [Concomitant]
  4. LEVOTHYROXINE SODIUM [Concomitant]
  5. CO APPROVAL [Concomitant]

REACTIONS (4)
  - HEADACHE [None]
  - IRRITABILITY [None]
  - SUICIDAL IDEATION [None]
  - AGGRESSION [None]
